FAERS Safety Report 15572270 (Version 1)
Quarter: 2018Q4

REPORT INFORMATION
  Report Type: Spontaneous
  Country: CN (occurrence: CN)
  Receive Date: 20181031
  Receipt Date: 20181031
  Transmission Date: 20190205
  Serious: Yes (Life-Threatening, Other)
  Sender: FDA-Public Use
  Company Number: CN-BAYER-2018-201621

PATIENT
  Age: 50 Year
  Sex: Male
  Weight: 72 kg

DRUGS (1)
  1. MAGNEVIST [Suspect]
     Active Substance: GADOPENTETATE DIMEGLUMINE
     Indication: IMAGING PROCEDURE
     Dosage: 20 ML, ONCE
     Route: 042
     Dates: start: 20180904, end: 20180904

REACTIONS (5)
  - Rash erythematous [Recovering/Resolving]
  - Swelling of eyelid [Recovering/Resolving]
  - Pruritus [Recovering/Resolving]
  - Sensation of foreign body [Recovering/Resolving]
  - Erythema of eyelid [Recovering/Resolving]

NARRATIVE: CASE EVENT DATE: 20180904
